FAERS Safety Report 15563693 (Version 1)
Quarter: 2018Q4

REPORT INFORMATION
  Report Type: Spontaneous
  Country: AU (occurrence: AU)
  Receive Date: 20181029
  Receipt Date: 20181029
  Transmission Date: 20190205
  Serious: Yes (Hospitalization, Other)
  Sender: FDA-Public Use
  Company Number: PHHY2018AU139532

PATIENT
  Age: 39 Year
  Sex: Female
  Weight: 127 kg

DRUGS (8)
  1. RISPERIDONE. [Suspect]
     Active Substance: RISPERIDONE
     Indication: PRODUCT USED FOR UNKNOWN INDICATION
     Dosage: 2 MG, NOCTE
     Route: 065
  2. SOLIAN [Suspect]
     Active Substance: AMISULPRIDE
     Indication: PRODUCT USED FOR UNKNOWN INDICATION
     Dosage: 400 MG, UNK
     Route: 065
  3. CLOMIPRAMINE [Suspect]
     Active Substance: CLOMIPRAMINE
     Indication: PRODUCT USED FOR UNKNOWN INDICATION
     Dosage: 125 MG, NOCTE
     Route: 065
  4. CLOZAPINE. [Suspect]
     Active Substance: CLOZAPINE
     Indication: PRODUCT USED FOR UNKNOWN INDICATION
     Dosage: UNK
     Route: 065
  5. TOPIRAMATE. [Suspect]
     Active Substance: TOPIRAMATE
     Indication: ANTIPSYCHOTIC DRUG LEVEL
     Dosage: 50 MG, NOCTE
     Route: 065
  6. METFORMIN [Suspect]
     Active Substance: METFORMIN HYDROCHLORIDE
     Indication: PRODUCT USED FOR UNKNOWN INDICATION
     Dosage: 1000 MG, NOCTE
     Route: 065
  7. LAMOTRIGINE. [Suspect]
     Active Substance: LAMOTRIGINE
     Indication: PRODUCT USED FOR UNKNOWN INDICATION
     Dosage: 100 MG, BID
     Route: 065
  8. TOPIRAMATE. [Suspect]
     Active Substance: TOPIRAMATE
     Indication: WEIGHT INCREASED

REACTIONS (13)
  - Obesity [Unknown]
  - Pulmonary hypertension [Unknown]
  - Hallucination, auditory [Not Recovered/Not Resolved]
  - Diabetes mellitus [Unknown]
  - Diastolic dysfunction [Unknown]
  - Myocarditis [Unknown]
  - Cardiac steatosis [Unknown]
  - Regurgitation [Unknown]
  - Sinus arrhythmia [Unknown]
  - Hyperkinetic heart syndrome [Unknown]
  - Aortic arteriosclerosis [Unknown]
  - Atrial enlargement [Unknown]
  - Goitre [Unknown]

NARRATIVE: CASE EVENT DATE: 20180922
